FAERS Safety Report 23223113 (Version 2)
Quarter: 2025Q1

REPORT INFORMATION
  Report Type: Spontaneous
  Country: US (occurrence: US)
  Receive Date: 20231123
  Receipt Date: 20250218
  Transmission Date: 20250409
  Serious: No
  Sender: TEVA
  Company Number: US-TEVA-2023-US-2947477

PATIENT
  Sex: Female

DRUGS (1)
  1. AUSTEDO [Suspect]
     Active Substance: DEUTETRABENAZINE
     Indication: Tardive dyskinesia
     Route: 065

REACTIONS (1)
  - Mania [Unknown]
